FAERS Safety Report 16249531 (Version 1)
Quarter: 2019Q2

REPORT INFORMATION
  Report Type: Spontaneous
  Country: US (occurrence: US)
  Receive Date: 20190429
  Receipt Date: 20190429
  Transmission Date: 20190711
  Serious: Yes (Other)
  Sender: FDA-Public Use
  Company Number: US-BAYER-2019-079172

PATIENT
  Sex: Female

DRUGS (1)
  1. SKYLA [Suspect]
     Active Substance: LEVONORGESTREL
     Dosage: 14 MCG/24HR, CONT
     Route: 015
     Dates: start: 20171127

REACTIONS (8)
  - Dysmenorrhoea [None]
  - Hypomenorrhoea [Recovered/Resolved]
  - Device dislocation [None]
  - Menorrhagia [Not Recovered/Not Resolved]
  - Vaginal discharge [None]
  - Polymenorrhoea [None]
  - Abdominal pain lower [None]
  - Discomfort [Not Recovered/Not Resolved]
